FAERS Safety Report 5144390-3 (Version None)
Quarter: 2006Q4

REPORT INFORMATION
  Report Type: 
  Country: None (occurrence: None)
  Receive Date: 20061030
  Receipt Date: 20061019
  Transmission Date: 20070319
  Serious: Yes (Hospitalization)
  Sender: FDA-Public Use
  Company Number: 2006051115

PATIENT
  Age: 53 Year
  Sex: Female

DRUGS (22)
  1. NEURONTIN [Suspect]
     Indication: FIBROMYALGIA
     Dosage: 1800 MG (600 MG, 3 IN 1 D)
     Dates: start: 19990801, end: 20021101
  2. NEURONTIN [Suspect]
     Indication: PAIN
     Dosage: 1800 MG (600 MG, 3 IN 1 D)
     Dates: start: 19990801, end: 20021101
  3. KLONOPIN [Concomitant]
  4. LUVOX [Concomitant]
  5. PROZAC [Concomitant]
  6. SEROQUEL [Concomitant]
  7. ALL OTHER THERAPEUTIC PRODUCTS [Concomitant]
  8. ADDERALL 10 [Concomitant]
  9. HYDROCODONE BITARTRATE + ACETAMINOPHEN [Concomitant]
  10. PROPOXYPHENE NAPSYLATE W/ACETAMINOPHENE (DEXTROPROPOXYPHENE NAPSILATE, [Concomitant]
  11. PERCOCET [Concomitant]
  12. OXYCONTIN [Concomitant]
  13. CYCLOBENZAPRINE HCL [Concomitant]
  14. AMPHETAMINE         (AMFETAMINE) [Concomitant]
  15. CARISOPRODOL [Concomitant]
  16. ORPHENADRINE CITRATE [Concomitant]
  17. MOBIC [Concomitant]
  18. EVISTA [Concomitant]
  19. ZANAFLEX [Concomitant]
  20. ZOLOFT [Concomitant]
  21. ZYPREXA [Concomitant]
  22. SKELAXIN [Concomitant]

REACTIONS (15)
  - AGGRESSION [None]
  - ARTHRALGIA [None]
  - BACK PAIN [None]
  - BIPOLAR DISORDER [None]
  - DELUSION [None]
  - DRUG INEFFECTIVE [None]
  - EMOTIONAL DISORDER [None]
  - FEAR OF DEATH [None]
  - IMPAIRED WORK ABILITY [None]
  - OVERDOSE [None]
  - PSYCHOTIC DISORDER [None]
  - ROAD TRAFFIC ACCIDENT [None]
  - SCHIZOPHRENIA, PARANOID TYPE [None]
  - SUICIDE ATTEMPT [None]
  - UNEVALUABLE EVENT [None]
